FAERS Safety Report 15913011 (Version 1)
Quarter: 2019Q1

REPORT INFORMATION
  Report Type: Spontaneous
  Country: US (occurrence: US)
  Receive Date: 20190204
  Receipt Date: 20190204
  Transmission Date: 20190417
  Serious: No
  Sender: FDA-Public Use
  Company Number: US-ABBVIE-18K-163-2464665-00

PATIENT
  Age: 21 Year
  Sex: Female
  Weight: 63.56 kg

DRUGS (3)
  1. HUMIRA [Suspect]
     Active Substance: ADALIMUMAB
     Indication: CROHN^S DISEASE
     Dosage: LOADING DOSE
     Route: 058
  2. JUNELL [Concomitant]
     Indication: CONTRACEPTION
  3. HUMIRA [Suspect]
     Active Substance: ADALIMUMAB
     Route: 058
     Dates: start: 20180810, end: 201808

REACTIONS (9)
  - Flushing [Recovered/Resolved]
  - Drug hypersensitivity [Recovered/Resolved]
  - Rash pustular [Recovered/Resolved]
  - Pain of skin [Recovered/Resolved]
  - Facial pain [Recovered/Resolved]
  - Emotional distress [Unknown]
  - Erythema [Recovered/Resolved]
  - Erythema [Recovering/Resolving]
  - Skin infection [Recovered/Resolved]

NARRATIVE: CASE EVENT DATE: 201808
